FAERS Safety Report 6523644-X (Version None)
Quarter: 2009Q4

REPORT INFORMATION
  Report Type: 
  Country: None (occurrence: None)
  Receive Date: 20091231
  Receipt Date: 20091222
  Transmission Date: 20100525
  Serious: Yes (Hospitalization)
  Sender: FDA-Public Use
  Company Number: IT-ASTRAZENECA-2009SE33190

PATIENT
  Age: 28068 Day
  Sex: Female

DRUGS (7)
  1. MERREM [Suspect]
     Indication: POSTOPERATIVE WOUND INFECTION
     Route: 042
     Dates: start: 20091103, end: 20091124
  2. TAZOCIN [Suspect]
     Indication: POSTOPERATIVE WOUND INFECTION
     Route: 041
     Dates: start: 20091123, end: 20091125
  3. ASPIRIN [Suspect]
     Indication: THROMBOSIS PROPHYLAXIS
     Route: 048
     Dates: start: 20091124, end: 20091125
  4. TARGOCID [Concomitant]
     Indication: POSTOPERATIVE WOUND INFECTION
     Route: 042
     Dates: start: 20091107, end: 20091124
  5. SELEPARINA [Concomitant]
     Route: 058
     Dates: start: 20091119, end: 20091124
  6. FERROGRAD [Concomitant]
     Indication: ANAEMIA
     Route: 048
     Dates: start: 20091115, end: 20091128
  7. CALCIUM SANDOZ [Concomitant]
     Indication: HYPOCALCAEMIA
     Route: 048
     Dates: start: 20091106, end: 20091128

REACTIONS (1)
  - RASH MACULO-PAPULAR [None]
